FAERS Safety Report 4709316-2 (Version None)
Quarter: 2005Q3

REPORT INFORMATION
  Report Type: 
  Country: None (occurrence: None)
  Receive Date: 20050708
  Receipt Date: 20050627
  Transmission Date: 20060218
  Serious: Yes (Death, Life-Threatening, Hospitalization, Other)
  Sender: FDA-Public Use
  Company Number: GB-JNJFOC-20050606949

PATIENT
  Sex: Female
  Weight: 54 kg

DRUGS (13)
  1. REMICADE [Suspect]
     Indication: RHEUMATOID ARTHRITIS
     Route: 042
  2. PREDNISOLONE [Concomitant]
     Route: 065
  3. METHOTREXATE [Concomitant]
     Route: 065
  4. FOLIC ACID [Concomitant]
     Route: 065
  5. FOSAMAX [Concomitant]
     Route: 065
  6. VIOXX [Concomitant]
     Route: 065
  7. ACETAMINOPHEN W/ CODEINE [Concomitant]
     Route: 065
  8. ACETAMINOPHEN W/ CODEINE [Concomitant]
     Route: 065
  9. FLECAINIDE ACETATE [Concomitant]
     Route: 065
  10. NEOCLARITYN [Concomitant]
     Route: 065
  11. NASONEX [Concomitant]
     Route: 065
  12. COD LIVER OIL [Concomitant]
     Route: 065
  13. EVENING PRIMROSE OIL [Concomitant]
     Route: 065

REACTIONS (1)
  - COR PULMONALE [None]
